FAERS Safety Report 11683658 (Version 1)
Quarter: 2015Q4

REPORT INFORMATION
  Report Type: Spontaneous
  Country: US (occurrence: US)
  Receive Date: 20151029
  Receipt Date: 20151029
  Transmission Date: 20160304
  Serious: No
  Sender: FDA-Public Use
  Company Number: US-ROCHE-1497466

PATIENT
  Age: 55 Year
  Sex: Female

DRUGS (6)
  1. CAPECITABINE. [Concomitant]
     Active Substance: CAPECITABINE
     Route: 065
  2. TAXOTERE [Concomitant]
     Active Substance: DOCETAXEL
     Route: 065
     Dates: start: 201201
  3. CARBOPLATIN. [Concomitant]
     Active Substance: CARBOPLATIN
     Route: 065
     Dates: start: 201201
  4. PACLITAXEL. [Concomitant]
     Active Substance: PACLITAXEL
  5. LAPATINIB [Concomitant]
     Active Substance: LAPATINIB
  6. HERCEPTIN [Suspect]
     Active Substance: TRASTUZUMAB
     Indication: OESOPHAGEAL CANCER METASTATIC
     Route: 065
     Dates: start: 201201

REACTIONS (2)
  - Drug resistance [Unknown]
  - Treatment failure [Unknown]
